FAERS Safety Report 16626347 (Version 2)
Quarter: 2019Q3

REPORT INFORMATION
  Report Type: Report from Study
  Country: MX (occurrence: MX)
  Receive Date: 20190724
  Receipt Date: 20190819
  Transmission Date: 20191004
  Serious: Yes (Death, Other)
  Sender: FDA-Public Use
  Company Number: MX-CELGENEUS-MEX-20190605973

PATIENT
  Age: 74 Year
  Sex: Female

DRUGS (3)
  1. VIDAZA [Suspect]
     Active Substance: AZACITIDINE
     Indication: MYELODYSPLASTIC SYNDROME
     Dosage: 100 MILLIGRAM
     Route: 058
     Dates: start: 20181015
  2. VIDAZA [Suspect]
     Active Substance: AZACITIDINE
     Dosage: 100 MILLIGRAM
     Route: 058
     Dates: start: 20190429, end: 20190504
  3. VIDAZA [Suspect]
     Active Substance: AZACITIDINE
     Dosage: 100 MILLIGRAM
     Route: 058
     Dates: start: 20190618, end: 20190619

REACTIONS (8)
  - Pneumonia [Fatal]
  - Haemoglobin decreased [Unknown]
  - Spinal column injury [Unknown]
  - Syncope [Unknown]
  - Asthenia [Unknown]
  - Rotavirus infection [Unknown]
  - Haemoglobin increased [Unknown]
  - Head injury [Unknown]

NARRATIVE: CASE EVENT DATE: 201905
